FAERS Safety Report 6449665-3 (Version None)
Quarter: 2009Q4

REPORT INFORMATION
  Report Type: 
  Country: None (occurrence: None)
  Receive Date: 20091120
  Receipt Date: 20091109
  Transmission Date: 20100525
  Serious: Yes (Hospitalization)
  Sender: FDA-Public Use
  Company Number: PHHY2009JP47091

PATIENT
  Age: 22 Year
  Sex: Male

DRUGS (5)
  1. CYCLOSPORINE [Suspect]
     Indication: PSORIASIS
     Dosage: UNK
     Route: 048
     Dates: end: 20070101
  2. STEROIDS NOS [Concomitant]
     Indication: PSORIASIS
     Route: 061
  3. VITAMIN D3 [Concomitant]
     Indication: PSORIASIS
     Route: 061
  4. ETRETINATE [Concomitant]
     Indication: PSORIASIS
     Dosage: 30 MG DAILY
     Route: 048
     Dates: start: 20071114
  5. ETRETINATE [Concomitant]
     Dosage: 20 MG DAILY
     Route: 048
     Dates: start: 20090501

REACTIONS (5)
  - ARTHRALGIA [None]
  - EXTRASKELETAL OSSIFICATION [None]
  - HEPATIC FUNCTION ABNORMAL [None]
  - JOINT STIFFNESS [None]
  - PSORIASIS [None]
